FAERS Safety Report 23785768 (Version 2)
Quarter: 2024Q2

REPORT INFORMATION
  Report Type: Spontaneous
  Country: US (occurrence: US)
  Receive Date: 20240425
  Receipt Date: 20240521
  Transmission Date: 20240715
  Serious: Yes (Hospitalization, Other)
  Sender: FDA-Public Use
  Company Number: US-BRISTOL-MYERS SQUIBB COMPANY-2024-062549

PATIENT
  Age: 85 Year
  Sex: Female
  Weight: 67.13 kg

DRUGS (2)
  1. POMALYST [Suspect]
     Active Substance: POMALIDOMIDE
     Indication: Plasma cell myeloma
     Dosage: 3 WEEKS ON, 1 WEEK OFF
     Route: 048
     Dates: start: 20240122
  2. POMALYST [Suspect]
     Active Substance: POMALIDOMIDE
     Route: 048

REACTIONS (3)
  - Transient ischaemic attack [Recovering/Resolving]
  - Muscle spasms [Unknown]
  - Fatigue [Unknown]

NARRATIVE: CASE EVENT DATE: 20240328
